FAERS Safety Report 6488478-3 (Version None)
Quarter: 2009Q4

REPORT INFORMATION
  Report Type: 
  Country: None (occurrence: None)
  Receive Date: 20091123
  Receipt Date: 20091012
  Transmission Date: 20100525
  Serious: No
  Sender: FDA-Public Use
  Company Number: 8053197

PATIENT
  Age: 51 Year
  Sex: Male
  Weight: 79.1 kg

DRUGS (3)
  1. CIMZIA [Suspect]
     Indication: CROHN'S DISEASE
     Dosage: 400 MG SC; A FEW MONTHS
     Route: 058
     Dates: start: 20090101
  2. ASACOL [Concomitant]
     Dates: start: 20090101
  3. CLONAZEPAM [Concomitant]

REACTIONS (1)
  - INJECTION SITE PAIN [None]
